FAERS Safety Report 15853512 (Version 1)
Quarter: 2019Q1

REPORT INFORMATION
  Report Type: Spontaneous
  Country: US (occurrence: US)
  Receive Date: 20190120
  Receipt Date: 20190120
  Transmission Date: 20190417
  Serious: Yes (Disabling, Other)
  Sender: FDA-Public Use
  Company Number: None

PATIENT
  Age: 58 Year
  Sex: Male
  Weight: 122.85 kg

DRUGS (12)
  1. MELOXICAM. [Concomitant]
     Active Substance: MELOXICAM
  2. MENS MULTIVITAMIN [Concomitant]
  3. COENZYME Q10 [Concomitant]
     Active Substance: UBIDECARENONE
  4. MELATONIN [Concomitant]
     Active Substance: MELATONIN
  5. DULOXETINE HCL 60MG PO CAP [Suspect]
     Active Substance: DULOXETINE HYDROCHLORIDE
     Indication: ADJUSTMENT DISORDER WITH DEPRESSED MOOD
     Dosage: ?          QUANTITY:1 CAPSULE(S);?
     Route: 048
     Dates: start: 20180831
  6. VITAMIN D [Concomitant]
     Active Substance: CHOLECALCIFEROL
  7. PROBIOTIC [Concomitant]
     Active Substance: PROBIOTICS NOS
  8. LISINOPRIL. [Concomitant]
     Active Substance: LISINOPRIL
  9. TRAMODOL [Concomitant]
     Active Substance: TRAMADOL
  10. AMLODIPINE BESYLATE. [Concomitant]
     Active Substance: AMLODIPINE BESYLATE
  11. CALCIUM/MAGNESIUM/ZINC [Concomitant]
  12. CRAMPBARK [Concomitant]

REACTIONS (6)
  - Insomnia [None]
  - Fatigue [None]
  - Sexual dysfunction [None]
  - Dizziness [None]
  - Anxiety [None]
  - Diarrhoea [None]

NARRATIVE: CASE EVENT DATE: 20190114
